FAERS Safety Report 6935000-0 (Version None)
Quarter: 2010Q3

REPORT INFORMATION
  Report Type: 
  Country: None (occurrence: None)
  Receive Date: 20100822
  Receipt Date: 20100809
  Transmission Date: 20110219
  Serious: Yes (Other)
  Sender: FDA-Public Use
  Company Number: PHHY2010CA45736

PATIENT
  Sex: Female

DRUGS (10)
  1. ZOLEDRONIC [Suspect]
     Indication: OSTEOPOROSIS
     Dosage: 5 MG/ 100 ML ONCE YEAR
     Route: 042
     Dates: start: 20090630
  2. ZOLEDRONIC [Suspect]
     Dosage: 5 MG/100 ML ONCE A YEAR
     Dates: start: 20100701
  3. AMITRIPTYLINE HCL [Concomitant]
     Dosage: 50 MG
  4. CYMBALTA [Concomitant]
     Dosage: 90 MG
  5. OLANZAPINE [Concomitant]
     Dosage: 5 MG
  6. NEXIUM [Concomitant]
     Dosage: 40 MG
  7. CLONAZEPAM [Concomitant]
     Dosage: 2 MG
  8. ELMIRON [Concomitant]
     Dosage: 100 MG
  9. CRESTOR [Concomitant]
     Dosage: 10 MG
  10. VITAMIN D [Concomitant]
     Dosage: ONCE A WEEK

REACTIONS (4)
  - FIBROMYALGIA [None]
  - INSOMNIA [None]
  - PAIN [None]
  - PYREXIA [None]
